FAERS Safety Report 6771138-9 (Version None)
Quarter: 2010Q2

REPORT INFORMATION
  Report Type: 
  Country: None (occurrence: None)
  Receive Date: 20100614
  Receipt Date: 20100614
  Transmission Date: 20101027
  Serious: Yes (Other)
  Sender: FDA-Public Use
  Company Number: None

PATIENT
  Sex: Female
  Weight: 57.1532 kg

DRUGS (2)
  1. BUDESONIDE [Suspect]
     Indication: BRONCHOMALACIA
     Dosage: 0.50MG(TEV)2MI TWICE A DAY NEBULIZER
     Dates: start: 20100201, end: 20100520
  2. BUDESONIDE [Suspect]
     Indication: CHRONIC OBSTRUCTIVE PULMONARY DISEASE
     Dosage: 0.50MG(TEV)2MI TWICE A DAY NEBULIZER
     Dates: start: 20100201, end: 20100520

REACTIONS (3)
  - COUGH [None]
  - DRUG INEFFECTIVE [None]
  - DYSPNOEA [None]
